FAERS Safety Report 9190987 (Version 4)
Quarter: 2013Q2

REPORT INFORMATION
  Report Type: Report from Study
  Country: BE (occurrence: BE)
  Receive Date: 20130326
  Receipt Date: 20130606
  Transmission Date: 20140414
  Serious: Yes (Hospitalization)
  Sender: FDA-Public Use
  Company Number: BE-ROCHE-1204074

PATIENT
  Age: 83 Year
  Sex: Female
  Weight: 48.1 kg

DRUGS (23)
  1. TRASTUZUMAB EMTANSINE [Suspect]
     Indication: BREAST CANCER
     Dosage: LAST DOSE ON 11/MAR/2013 WAS 160.2MG
     Route: 042
     Dates: start: 20121015
  2. TRASTUZUMAB [Suspect]
     Indication: BREAST CANCER
     Dosage: LAST DOSE PRIOR TO SAE ON 01/OCT/2012 WAS 289.2MG
     Route: 042
     Dates: start: 20120730
  3. VINORELBINE [Suspect]
     Indication: BREAST CANCER
     Dosage: LAST DOSE PRIOR TO SAE ON 01/OCT/2012 AS 35.95MG
     Route: 042
     Dates: start: 20120730
  4. AMLODIPINE [Concomitant]
     Indication: HYPERTENSION
  5. BISOPROLOL [Concomitant]
  6. ASPIRINE [Concomitant]
     Route: 065
  7. ASPIRINE [Concomitant]
     Route: 065
     Dates: start: 20130319
  8. COZAAR PLUS [Concomitant]
     Indication: HYPERTENSION
     Route: 065
  9. COZAAR PLUS [Concomitant]
     Route: 065
     Dates: start: 20130319
  10. MOXONIDINE [Concomitant]
     Indication: HYPERTENSION
  11. DAFALGAN [Concomitant]
     Indication: PAIN
  12. MOTIFENE [Concomitant]
     Indication: PAIN
     Route: 065
     Dates: start: 20121001
  13. ULTRA K [Concomitant]
     Indication: HYPOKALAEMIA
     Route: 065
     Dates: start: 20121126
  14. OXYNORM [Concomitant]
     Indication: PAIN
     Route: 065
     Dates: start: 20121214, end: 20130312
  15. OXYNORM [Concomitant]
     Route: 065
     Dates: start: 20130313
  16. DUROGESIC [Concomitant]
     Indication: PAIN
     Route: 065
     Dates: start: 20130107, end: 20130312
  17. DUROGESIC [Concomitant]
     Route: 065
     Dates: start: 20130313
  18. CLEXANE [Concomitant]
     Indication: THROMBOSIS
     Route: 065
     Dates: start: 20130319, end: 20130324
  19. LORMETAZEPAM EG [Concomitant]
     Indication: INSOMNIA
     Route: 065
     Dates: start: 20130318
  20. ASAFLOW [Concomitant]
  21. MOXON [Concomitant]
     Indication: HYPERTENSION
     Route: 065
     Dates: start: 20130319
  22. EMCONCOR [Concomitant]
     Indication: HYPERTENSION
     Route: 065
     Dates: start: 20130319
  23. AMLOR [Concomitant]
     Indication: HYPERTENSION

REACTIONS (1)
  - Decreased appetite [Recovered/Resolved]
